FAERS Safety Report 15658906 (Version 1)
Quarter: 2018Q4

REPORT INFORMATION
  Report Type: Spontaneous
  Country: US (occurrence: US)
  Receive Date: 20181126
  Receipt Date: 20181126
  Transmission Date: 20190205
  Serious: Yes (Hospitalization)
  Sender: FDA-Public Use
  Company Number: US-ANIPHARMA-2018-US-018320

PATIENT
  Age: 72 Year
  Sex: Female

DRUGS (3)
  1. UNSPECIFIED SALICYLATE [Suspect]
     Active Substance: SALICYLIC ACID
     Indication: PRODUCT USED FOR UNKNOWN INDICATION
  2. NORTRIPTYLINE HCL (NON-SPECIFIC) [Suspect]
     Active Substance: NORTRIPTYLINE HYDROCHLORIDE
     Indication: PRODUCT USED FOR UNKNOWN INDICATION
  3. ACETAZOLAMIDE. [Suspect]
     Active Substance: ACETAZOLAMIDE
     Indication: PRODUCT USED FOR UNKNOWN INDICATION

REACTIONS (3)
  - Intentional overdose [Recovered/Resolved]
  - Toxic leukoencephalopathy [Recovered/Resolved]
  - Posterior reversible encephalopathy syndrome [Recovered/Resolved]
